FAERS Safety Report 5491341-8 (Version None)
Quarter: 2007Q4

REPORT INFORMATION
  Report Type: 
  Country: None (occurrence: None)
  Receive Date: 20071017
  Receipt Date: 20071001
  Transmission Date: 20080405
  Serious: Yes (Death, Hospitalization)
  Sender: FDA-Public Use
  Company Number: A-JP2007-17241

PATIENT
  Age: 60 Year
  Sex: Female
  Weight: 45 kg

DRUGS (14)
  1. TRACLEER [Suspect]
     Indication: PULMONARY HYPERTENSION
     Dosage: 62.5 MG, TID, 62.5 MG, BID, 62.5 MG, QID
     Dates: start: 20070126, end: 20070402
  2. TRACLEER [Suspect]
     Indication: PULMONARY HYPERTENSION
     Dosage: 62.5 MG, TID, 62.5 MG, BID, 62.5 MG, QID
     Dates: start: 20070403, end: 20070510
  3. TRACLEER [Suspect]
     Indication: PULMONARY HYPERTENSION
     Dosage: 62.5 MG, TID, 62.5 MG, BID, 62.5 MG, QID
     Dates: start: 20070511, end: 20070722
  4. OXYGEN (OXYGEN) [Concomitant]
  5. BERAPROST SODIUM (BERAPROST SODIUM) [Concomitant]
  6. RISEDRONATE SODIUM [Concomitant]
  7. RABEPRAZOLE SODIUM [Concomitant]
  8. ASPIRIN [Concomitant]
  9. AMLODIPINE BESYLATE [Concomitant]
  10. VALSARTAN [Concomitant]
  11. PREDNISONE [Concomitant]
  12. ETHYL ICOSAPENTATE (ETHYL ICOSAPENTATE) [Concomitant]
  13. ALFACALCIDOL (ALFACALCIDOL) [Concomitant]
  14. TULOBUTEROL (TULOBUTEROL) [Concomitant]

REACTIONS (4)
  - CONDITION AGGRAVATED [None]
  - DRUG INEFFECTIVE [None]
  - INTERSTITIAL LUNG DISEASE [None]
  - PULMONARY HYPERTENSION [None]
